FAERS Safety Report 10510568 (Version 2)
Quarter: 2014Q4

REPORT INFORMATION
  Report Type: Spontaneous
  Country: DE (occurrence: DE)
  Receive Date: 20141010
  Receipt Date: 20141010
  Transmission Date: 20150528
  Serious: Yes (Hospitalization)
  Sender: FDA-Public Use
  Company Number: DE-RANBAXY-2014RR-85021

PATIENT
  Age: 79 Year
  Sex: Female

DRUGS (7)
  1. VOLTAREN [Concomitant]
     Active Substance: DICLOFENAC SODIUM
     Indication: PRODUCT USED FOR UNKNOWN INDICATION
     Dosage: UNK, PRN
     Route: 065
  2. PANTOPRAZOLE [Concomitant]
     Active Substance: PANTOPRAZOLE SODIUM
     Indication: PRODUCT USED FOR UNKNOWN INDICATION
     Dosage: 20 MG DAILY, FOR SEVERAL YEARS
     Route: 065
  3. NEBIVOLOL [Concomitant]
     Active Substance: NEBIVOLOL
     Indication: PRODUCT USED FOR UNKNOWN INDICATION
     Dosage: 5 MG
     Route: 065
  4. SERTRALIN BASICS 100MG FILMTABLETTEN [Suspect]
     Active Substance: SERTRALINE HYDROCHLORIDE
     Indication: MAJOR DEPRESSION
     Dosage: 100 MG, QD
     Route: 065
     Dates: start: 201401, end: 20140904
  5. SIMVASTATIN. [Concomitant]
     Active Substance: SIMVASTATIN
     Indication: PRODUCT USED FOR UNKNOWN INDICATION
     Dosage: 20 MG
     Route: 065
  6. ASS 100 [Concomitant]
     Active Substance: ASPIRIN
     Indication: PRODUCT USED FOR UNKNOWN INDICATION
     Dosage: 1 TABLET DAILY
     Route: 065
     Dates: start: 1996
  7. ENALAPRIL [Concomitant]
     Active Substance: ENALAPRIL
     Indication: PRODUCT USED FOR UNKNOWN INDICATION
     Dosage: 1/2 TAB DAILY, FOR SEVERAL YEARS
     Route: 065
     Dates: end: 1996

REACTIONS (15)
  - Colitis microscopic [Unknown]
  - Muscle disorder [Unknown]
  - Acute kidney injury [Recovered/Resolved]
  - Alopecia [Recovered/Resolved]
  - Arthropathy [Unknown]
  - Dry mouth [Unknown]
  - Hypocalcaemia [Unknown]
  - Productive cough [Unknown]
  - Nasopharyngitis [Unknown]
  - Insomnia [Unknown]
  - Tongue coated [Unknown]
  - Dizziness [Unknown]
  - Headache [Unknown]
  - Diarrhoea [Recovered/Resolved]
  - Gastrointestinal tract irritation [Unknown]

NARRATIVE: CASE EVENT DATE: 2014
